FAERS Safety Report 5963738-0 (Version None)
Quarter: 2008Q4

REPORT INFORMATION
  Report Type: 
  Country: None (occurrence: None)
  Receive Date: 20081121
  Receipt Date: 20081121
  Transmission Date: 20090506
  Serious: Yes (Other)
  Sender: FDA-Public Use
  Company Number: None

PATIENT
  Sex: Male
  Weight: 68.0396 kg

DRUGS (1)
  1. DOXAZOSIN MESYLATE [Suspect]
     Indication: BRACHYTHERAPY TO PROSTATE
     Dosage: 4 PILLS MAX DAILY PO
     Route: 048
     Dates: start: 20071017, end: 20080701

REACTIONS (3)
  - HYPOAESTHESIA [None]
  - PAIN IN EXTREMITY [None]
  - PARAESTHESIA [None]
